FAERS Safety Report 6806965-2 (Version None)
Quarter: 2010Q2

REPORT INFORMATION
  Report Type: 
  Country: None (occurrence: None)
  Receive Date: 20100629
  Receipt Date: 20080521
  Transmission Date: 20101027
  Serious: No
  Sender: FDA-Public Use
  Company Number: US-PFIZER INC-2008044635

PATIENT
  Age: 18 Year
  Sex: Female
  Weight: 61.363 kg

DRUGS (2)
  1. METHYLPREDNISOLONE 16MG TAB [Suspect]
     Indication: PHARYNGEAL OEDEMA
     Dates: start: 20080501, end: 20080501
  2. VALTREX [Concomitant]

REACTIONS (1)
  - JOINT SWELLING [None]
